FAERS Safety Report 10396160 (Version 1)
Quarter: 2014Q3

REPORT INFORMATION
  Report Type: Spontaneous
  Country: US (occurrence: None)
  Receive Date: 20140815
  Receipt Date: 20140815
  Transmission Date: 20150326
  Serious: Yes (Other)
  Sender: FDA-Public Use
  Company Number: None

PATIENT
  Age: 75 Year
  Sex: Female
  Weight: 102.06 kg

DRUGS (3)
  1. FLOVENT [Suspect]
     Active Substance: FLUTICASONE PROPIONATE
     Indication: WHEEZING
     Dosage: 2 SPRAYS IN EACH NOSTRIL AM AN  TWICE DAILY INHALATION
     Route: 055
     Dates: start: 20140714, end: 20140727
  2. FLOVENT [Suspect]
     Active Substance: FLUTICASONE PROPIONATE
     Indication: BRONCHIECTASIS
     Dosage: 2 SPRAYS IN EACH NOSTRIL AM AN  TWICE DAILY INHALATION
     Route: 055
     Dates: start: 20140714, end: 20140727
  3. FLOVENT [Suspect]
     Active Substance: FLUTICASONE PROPIONATE
     Indication: ASTHMA
     Dosage: 2 SPRAYS IN EACH NOSTRIL AM AN  TWICE DAILY INHALATION
     Route: 055
     Dates: start: 20140714, end: 20140727

REACTIONS (4)
  - Vocal cord disorder [None]
  - Neck pain [None]
  - Oropharyngeal pain [None]
  - Dysphonia [None]

NARRATIVE: CASE EVENT DATE: 20140714
